FAERS Safety Report 21920715 (Version 1)
Quarter: 2023Q1

REPORT INFORMATION
  Report Type: Report from Study
  Country: TW (occurrence: TW)
  Receive Date: 20230127
  Receipt Date: 20230127
  Transmission Date: 20230417
  Serious: Yes (Hospitalization)
  Sender: FDA-Public Use
  Company Number: TW-BRISTOL-MYERS SQUIBB COMPANY-2022-156416

PATIENT
  Age: 77 Year
  Sex: Male
  Weight: 59 kg

DRUGS (14)
  1. DARATUMUMAB [Suspect]
     Active Substance: DARATUMUMAB
     Indication: Plasma cell myeloma
     Dosage: PRIOR TO THE ONSET OF THE EVENT, THE PATIENT RECEIVED HIS MOST RECENT DOSE OF DARATUMUMAB ON 29-NOV-
     Route: 058
     Dates: start: 20221017
  2. IBERDOMIDE [Suspect]
     Active Substance: IBERDOMIDE
     Indication: Plasma cell myeloma
     Dosage: PRIOR TO THE ONSET OF THE EVENT, THE PATIENT RECEIVED HIS MOST RECENT DOSE OF IBERDOMIDE ON 06-NOV-2
     Route: 048
     Dates: start: 20221017
  3. DEXAMETHASONE [Suspect]
     Active Substance: DEXAMETHASONE
     Indication: Plasma cell myeloma
     Dosage: PRIOR TO THE ONSET OF THE EVENT, THE PATIENT RECEIVED HIS MOST RECENT DOSE OF DEXAMETHASONE ON 29-NO
     Route: 048
     Dates: start: 20221017
  4. BISACODYL [Concomitant]
     Active Substance: BISACODYL
     Indication: Constipation
     Dosage: DOSE: 2 UNITS NOS
     Route: 048
     Dates: start: 20200422
  5. BISOPROLOL [Concomitant]
     Active Substance: BISOPROLOL
     Indication: Hypertension
     Dosage: DOSE: 1 TABLET
     Route: 048
     Dates: start: 20220816
  6. CALCIUM GLUCONATE [Concomitant]
     Active Substance: CALCIUM GLUCONATE
     Indication: Prophylaxis
     Dosage: FREQUENCY : ONCE
     Route: 042
     Dates: start: 20221024
  7. DIOVAN [Concomitant]
     Active Substance: VALSARTAN
     Indication: Hypertension
     Dosage: DOSE: 1 TABLET
     Route: 048
     Dates: start: 20091007
  8. HYTRIN [Concomitant]
     Active Substance: TERAZOSIN HYDROCHLORIDE
     Indication: Hypertension
     Dosage: DOSE: 1 TABLET
     Route: 048
     Dates: start: 20200108
  9. MOPRIDE [CISAPRIDE] [Concomitant]
     Indication: Gastritis
     Dosage: DOSE: 1 TABLET
     Route: 048
     Dates: start: 20200213
  10. MOPRIDE [CISAPRIDE] [Concomitant]
     Indication: Duodenal ulcer
  11. NORVASC [Concomitant]
     Active Substance: AMLODIPINE BESYLATE
     Indication: Hypertension
     Dosage: DOSE: 1 TABLET
     Route: 048
     Dates: start: 20180724
  12. ROSIS [FUROSEMIDE] [Concomitant]
     Indication: Hypertension
     Dosage: FREQUENCY: ONCE
     Route: 042
     Dates: start: 20221024
  13. PIPERACILLIN SODIUM\TAZOBACTAM SODIUM [Concomitant]
     Active Substance: PIPERACILLIN SODIUM\TAZOBACTAM SODIUM
     Indication: Chills
     Dosage: DOSE: 2 VIAL
     Route: 042
     Dates: start: 20221021
  14. PIPERACILLIN SODIUM\TAZOBACTAM SODIUM [Concomitant]
     Active Substance: PIPERACILLIN SODIUM\TAZOBACTAM SODIUM
     Indication: Pyrexia

REACTIONS (1)
  - Muscular weakness [Recovered/Resolved]

NARRATIVE: CASE EVENT DATE: 20221202
